FAERS Safety Report 5188069-0 (Version None)
Quarter: 2006Q4

REPORT INFORMATION
  Report Type: 
  Country: None (occurrence: None)
  Receive Date: 20061221
  Receipt Date: 20061004
  Transmission Date: 20070319
  Serious: Yes (Death)
  Sender: FDA-Public Use
  Company Number: US-AMGEN-US194300

PATIENT
  Age: 78 Year
  Sex: Male
  Weight: 71 kg

DRUGS (5)
  1. EPOGEN [Suspect]
     Indication: DIALYSIS
     Route: 042
     Dates: start: 20060915
  2. ZEMPLAR [Concomitant]
     Dates: start: 20060826
  3. LISINOPRIL [Concomitant]
  4. RENAGEL [Concomitant]
  5. SENSIPAR [Concomitant]
     Dates: start: 20051227

REACTIONS (2)
  - ANAEMIA [None]
  - RENAL OSTEODYSTROPHY [None]
